FAERS Safety Report 11434050 (Version 1)
Quarter: 2015Q3

REPORT INFORMATION
  Report Type: Spontaneous
  Country: US (occurrence: US)
  Receive Date: 20150831
  Receipt Date: 20150831
  Transmission Date: 20151125
  Serious: Yes (Hospitalization, Other)
  Sender: FDA-Public Use
  Company Number: US-PFIZER INC-2015286542

PATIENT
  Age: 82 Year
  Sex: Female
  Weight: 83 kg

DRUGS (3)
  1. WARFARIN [Suspect]
     Active Substance: WARFARIN
     Indication: ATRIAL FIBRILLATION
     Dosage: 5 MG, DAILY
  2. OXYGEN. [Concomitant]
     Active Substance: OXYGEN
     Dosage: 2 TO 3 LITERS PER MINUTE AS NEEDED DURING DAY; THREE LITERS PER MINUTE CONTINUOSLY AT NIGHT
  3. REVATIO [Suspect]
     Active Substance: SILDENAFIL CITRATE
     Indication: PULMONARY HYPERTENSION
     Dosage: 20 MG TABLET, ONE TABLET BY MOUTH THREE TIMES A DAY
     Route: 048

REACTIONS (2)
  - Internal haemorrhage [Recovered/Resolved]
  - Intestinal haemorrhage [Recovered/Resolved]

NARRATIVE: CASE EVENT DATE: 201508
